FAERS Safety Report 6200520-3 (Version None)
Quarter: 2009Q2

REPORT INFORMATION
  Report Type: 
  Country: None (occurrence: None)
  Receive Date: 20090522
  Receipt Date: 20090514
  Transmission Date: 20091009
  Serious: Yes (Hospitalization, Other)
  Sender: FDA-Public Use
  Company Number: US-BAXTER-2009BH008611

PATIENT
  Age: 90 Year
  Sex: Male

DRUGS (4)
  1. MIDAZOLAM HYDROCHLORIDE [Suspect]
     Indication: SEDATION
     Route: 042
     Dates: start: 20090514, end: 20090514
  2. IRON [Concomitant]
     Indication: ANAEMIA
     Route: 065
  3. LISINOPRIL [Concomitant]
     Indication: HYPERTENSION
     Route: 065
  4. ALENDRONATE SODIUM [Concomitant]
     Indication: BENIGN PROSTATIC HYPERPLASIA
     Route: 065

REACTIONS (8)
  - ASTHENIA [None]
  - BLOOD CREATINE PHOSPHOKINASE INCREASED [None]
  - CHILLS [None]
  - FAECAL INCONTINENCE [None]
  - PYREXIA [None]
  - RENAL FAILURE [None]
  - TOXIC SHOCK SYNDROME [None]
  - TREMOR [None]
